FAERS Safety Report 8095054 (Version 2)
Quarter: 2012Q4

REPORT INFORMATION
  Report Type: 
  Country: US (occurrence: US)
  Receive Date: 20110817
  Receipt Date: 20121017
  Transmission Date: 20130627
  Serious: Yes (Hospitalization, Other)
  Sender: FDA-Public Use
  Company Number: US-US-EMD SERONO, INC.-7076419

PATIENT
  Age: 59 None
  Sex: Female
  Weight: 39 kg

DRUGS (2)
  1. REBIF [Suspect]
     Indication: MULTIPLE SCLEROSIS
     Dates: start: 20071024
  2. NITROGLYCERIN [Concomitant]
     Indication: ILIAC ARTERY OCCLUSION

REACTIONS (7)
  - Homicidal ideation [Unknown]
  - Pelvic fracture [Recovering/Resolving]
  - Fall [Unknown]
  - Palpitations [Unknown]
  - Oedema peripheral [Recovered/Resolved]
  - Injection site nodule [Not Recovered/Not Resolved]
  - Injection site discolouration [Not Recovered/Not Resolved]
